FAERS Safety Report 13705213 (Version 1)
Quarter: 2017Q2

REPORT INFORMATION
  Report Type: Spontaneous
  Country: US (occurrence: US)
  Receive Date: 20170629
  Receipt Date: 20170629
  Transmission Date: 20170830
  Serious: No
  Sender: FDA-Public Use
  Company Number: None

PATIENT
  Age: 62 Year
  Sex: Female

DRUGS (1)
  1. GILENYA [Suspect]
     Active Substance: FINGOLIMOD HYDROCHLORIDE
     Indication: MULTIPLE SCLEROSIS
     Dosage: 0.5MG ONE DAILY BY MOUTH
     Route: 048
     Dates: start: 20170620, end: 20170626

REACTIONS (1)
  - Angina pectoris [None]

NARRATIVE: CASE EVENT DATE: 20170620
